FAERS Safety Report 15034494 (Version 1)
Quarter: 2018Q2

REPORT INFORMATION
  Report Type: Spontaneous
  Country: FR (occurrence: FR)
  Receive Date: 20180620
  Receipt Date: 20180620
  Transmission Date: 20180711
  Serious: Yes (Hospitalization)
  Sender: FDA-Public Use
  Company Number: FR-TEVA-2018-FR-907536

PATIENT
  Age: 52 Year
  Sex: Female
  Weight: 101 kg

DRUGS (7)
  1. ERCEFURYL 200 MG, G?LULE [Suspect]
     Active Substance: NIFUROXAZIDE
     Indication: DIARRHOEA
     Route: 048
     Dates: start: 20180316, end: 20180321
  2. LOPERAMIDE (CHLORHYDRATE DE [Suspect]
     Active Substance: LOPERAMIDE
     Indication: DIARRHOEA
     Route: 048
     Dates: start: 20180309, end: 20180321
  3. SMECTA [Concomitant]
     Active Substance: MONTMORILLONITE
     Indication: DIARRHOEA
     Route: 048
     Dates: start: 20180309, end: 20180321
  4. CLARITHROMYCIN. [Suspect]
     Active Substance: CLARITHROMYCIN
     Indication: BACTERIAL DIARRHOEA
     Dosage: 1000 MILLIGRAM DAILY;
     Route: 048
     Dates: start: 20180320, end: 20180321
  5. SPASFON (PHLOROGLUCINOL) [Suspect]
     Active Substance: PHLOROGLUCINOL
     Indication: ABDOMINAL PAIN
     Route: 048
     Dates: start: 20180309, end: 20180328
  6. TIORFAN 100 MG, G?LULE [Suspect]
     Active Substance: RACECADOTRIL
     Indication: DIARRHOEA
     Route: 048
     Dates: start: 20180309, end: 20180329
  7. PARACETAMOL [Suspect]
     Active Substance: ACETAMINOPHEN
     Indication: ABDOMINAL PAIN
     Route: 048
     Dates: start: 20180309

REACTIONS (1)
  - Agranulocytosis [Recovered/Resolved]

NARRATIVE: CASE EVENT DATE: 20180321
